FAERS Safety Report 24056126 (Version 2)
Quarter: 2024Q3

REPORT INFORMATION
  Report Type: Spontaneous
  Country: KR (occurrence: KR)
  Receive Date: 20240705
  Receipt Date: 20240823
  Transmission Date: 20241016
  Serious: Yes (Other)
  Sender: PHARMAESSENTIA
  Company Number: KR-PHARMAESSENTIA CORPORATION-KR-2024-PEC-004057

PATIENT
  Age: 49 Year
  Sex: Female

DRUGS (1)
  1. BESREMI [Suspect]
     Active Substance: ROPEGINTERFERON ALFA-2B-NJFT
     Indication: Polycythaemia vera
     Dosage: 250 MCG, MONTHLY
     Route: 058
     Dates: start: 20240531, end: 20240531

REACTIONS (3)
  - Macular hole [Recovering/Resolving]
  - Incorrect dose administered [Unknown]
  - Inappropriate schedule of product administration [Unknown]

NARRATIVE: CASE EVENT DATE: 20240531
